FAERS Safety Report 25098204 (Version 3)
Quarter: 2025Q2

REPORT INFORMATION
  Report Type: Spontaneous
  Country: US (occurrence: US)
  Receive Date: 20250320
  Receipt Date: 20250424
  Transmission Date: 20250716
  Serious: Yes (Hospitalization, Other)
  Sender: CSL BEHRING
  Company Number: US-BEH-2025199613

PATIENT
  Age: 88 Year
  Sex: Male

DRUGS (1)
  1. HIZENTRA [Suspect]
     Active Substance: HUMAN IMMUNOGLOBULIN G
     Indication: Immunodeficiency common variable
     Dosage: 10 G, QW
     Route: 058
     Dates: start: 20220914

REACTIONS (4)
  - Craniofacial fracture [Unknown]
  - Fall [Unknown]
  - Cervical vertebral fracture [Unknown]
  - Tumour excision [Unknown]

NARRATIVE: CASE EVENT DATE: 20250313
